FAERS Safety Report 19733148 (Version 2)
Quarter: 2021Q3

REPORT INFORMATION
  Report Type: Spontaneous
  Country: IN (occurrence: IN)
  Receive Date: 20210823
  Receipt Date: 20210831
  Transmission Date: 20211014
  Serious: Yes (Other)
  Sender: FDA-Public Use
  Company Number: IN-CIPLA LTD.-2021IN05730

PATIENT

DRUGS (2)
  1. ASTHALIN [SALBUTAMOL] [Suspect]
     Active Substance: ALBUTEROL
     Dosage: UNK, TID 2 PUFFS, THREE TIMES A DAY
     Dates: start: 202107
  2. ASTHALIN [SALBUTAMOL] [Suspect]
     Active Substance: ALBUTEROL
     Indication: ASTHMA
     Dosage: UNKNOWN (FROM 3 DECADES)
     Route: 065

REACTIONS (5)
  - Product cleaning inadequate [Unknown]
  - Drug effect less than expected [Unknown]
  - Drug ineffective [Unknown]
  - Device delivery system issue [Unknown]
  - Product physical consistency issue [Unknown]
